FAERS Safety Report 16202793 (Version 4)
Quarter: 2019Q3

REPORT INFORMATION
  Report Type: Spontaneous
  Country: US (occurrence: US)
  Receive Date: 20190416
  Receipt Date: 20190820
  Transmission Date: 20191004
  Serious: Yes (Other)
  Sender: FDA-Public Use
  Company Number: US-PFIZER INC-2019151295

PATIENT
  Age: 60 Year
  Sex: Male
  Weight: 92 kg

DRUGS (3)
  1. TESTOSTERONE CIPIONATE [Suspect]
     Active Substance: TESTOSTERONE
     Indication: HYPOGONADISM
     Dosage: UNK
  2. TESTOSTERONE CIPIONATE [Suspect]
     Active Substance: TESTOSTERONE
     Indication: TESTICULAR FAILURE
     Dosage: 0.6 ML, UNK
     Route: 030
     Dates: start: 20190315, end: 2019
  3. TESTOSTERONE CIPIONATE [Suspect]
     Active Substance: TESTOSTERONE
     Dosage: 0.6 ML, EVERY 2 WEEKS
     Route: 030
     Dates: start: 20190315

REACTIONS (11)
  - Diarrhoea [Not Recovered/Not Resolved]
  - Asthenia [Unknown]
  - White blood cell count increased [Unknown]
  - Lymphocyte count decreased [Unknown]
  - Nausea [Recovered/Resolved]
  - Hot flush [Recovered/Resolved]
  - Neutrophil count increased [Unknown]
  - Blood glucose increased [Unknown]
  - Neutrophil percentage increased [Unknown]
  - Vomiting [Recovered/Resolved]
  - Feeling cold [Recovered/Resolved]

NARRATIVE: CASE EVENT DATE: 201809
